FAERS Safety Report 16311360 (Version 5)
Quarter: 2019Q3

REPORT INFORMATION
  Report Type: Spontaneous
  Country: PL (occurrence: PL)
  Receive Date: 20190514
  Receipt Date: 20190918
  Transmission Date: 20191004
  Serious: Yes (Death, Hospitalization, Disabling)
  Sender: FDA-Public Use
  Company Number: PHHY2019PL107422

PATIENT
  Age: 64 Year
  Sex: Female

DRUGS (20)
  1. AMITRIPTYLINE [Interacting]
     Active Substance: AMITRIPTYLINE
     Indication: PAIN
     Dosage: 50 MG, Q8H
     Route: 065
  2. FUROSEMIDE. [Suspect]
     Active Substance: FUROSEMIDE
     Indication: PROPHYLAXIS
  3. AMITRIPTYLINE [Interacting]
     Active Substance: AMITRIPTYLINE
     Indication: CANCER PAIN
  4. HEPARIN [Suspect]
     Active Substance: HEPARIN SODIUM
     Indication: PROPHYLAXIS
  5. OLANZAPINE. [Interacting]
     Active Substance: OLANZAPINE
     Indication: SLEEP DISORDER
     Dosage: 10 MG, QD
     Route: 065
  6. OLANZAPINE. [Interacting]
     Active Substance: OLANZAPINE
     Indication: INITIAL INSOMNIA
  7. OLANZAPINE. [Interacting]
     Active Substance: OLANZAPINE
     Indication: NAUSEA
  8. MORPHINE [Interacting]
     Active Substance: MORPHINE
     Indication: PAIN
     Dosage: 240 MG, QD
     Route: 048
  9. MORPHINE [Interacting]
     Active Substance: MORPHINE
     Indication: ANALGESIC THERAPY
  10. OLANZAPINE. [Interacting]
     Active Substance: OLANZAPINE
     Indication: PSYCHOTIC DISORDER
  11. MORPHINE [Interacting]
     Active Substance: MORPHINE
     Indication: CANCER PAIN
  12. AMITRIPTYLINE [Interacting]
     Active Substance: AMITRIPTYLINE
     Indication: SLEEP DISORDER
  13. FLUCONAZOLE. [Interacting]
     Active Substance: FLUCONAZOLE
     Indication: ORAL FUNGAL INFECTION
     Dosage: 200 MG, QD
     Route: 048
  14. MORPHINE [Interacting]
     Active Substance: MORPHINE
     Indication: NEURALGIA
  15. AMITRIPTYLINE [Interacting]
     Active Substance: AMITRIPTYLINE
     Indication: NEURALGIA
     Dosage: 150 MG, QD
     Route: 065
  16. FUROSEMIDE. [Suspect]
     Active Substance: FUROSEMIDE
     Indication: CERVIX CARCINOMA
     Dosage: 60 MG, QD
     Route: 065
  17. FUROSEMIDE. [Suspect]
     Active Substance: FUROSEMIDE
     Indication: OEDEMA PERIPHERAL
  18. HEPARIN [Suspect]
     Active Substance: HEPARIN SODIUM
     Indication: CERVIX CARCINOMA
     Dosage: UNK
     Route: 065
  19. POTASSIUM [Suspect]
     Active Substance: POTASSIUM
     Indication: CERVIX CARCINOMA
     Dosage: UNK
     Route: 065
  20. AMITRIPTYLINE [Interacting]
     Active Substance: AMITRIPTYLINE
     Indication: PSYCHOTIC DISORDER

REACTIONS (14)
  - Somnolence [Fatal]
  - Cough [Fatal]
  - Cyanosis [Fatal]
  - Haemoptysis [Fatal]
  - Confusional state [Fatal]
  - Dyspnoea [Fatal]
  - Oedema peripheral [Fatal]
  - Nausea [Recovered/Resolved]
  - Drug interaction [Fatal]
  - Swelling [Fatal]
  - Cardiac arrest [Fatal]
  - Cardio-respiratory arrest [Fatal]
  - Chest pain [Fatal]
  - Pulmonary embolism [Fatal]
